FAERS Safety Report 18455108 (Version 1)
Quarter: 2020Q4

REPORT INFORMATION
  Report Type: Spontaneous
  Country: CO (occurrence: CO)
  Receive Date: 20201103
  Receipt Date: 20201103
  Transmission Date: 20210114
  Serious: Yes (Other)
  Sender: FDA-Public Use
  Company Number: CO-SA-2020SA305918

PATIENT

DRUGS (4)
  1. ELOXATIN [Suspect]
     Active Substance: OXALIPLATIN
     Indication: COLON CANCER
     Dosage: 230 MG, Q3W
     Route: 042
     Dates: start: 20200703, end: 20201020
  2. CAPECITABINE. [Concomitant]
     Active Substance: CAPECITABINE
     Indication: COLON CANCER
     Dosage: 3000 MG
     Route: 048
     Dates: start: 20200703, end: 20200717
  3. ONDASETRON [ONDANSETRON] [Concomitant]
     Indication: PREMEDICATION
     Dosage: 16 MG, Q3W
     Route: 042
     Dates: start: 20200703, end: 20201020
  4. DEXAMETHASONE. [Concomitant]
     Active Substance: DEXAMETHASONE
     Indication: PREMEDICATION
     Dosage: 16 MG, Q3W
     Route: 042
     Dates: start: 20200703, end: 20201020

REACTIONS (3)
  - Choking [Recovered/Resolved]
  - Dysarthria [Recovered/Resolved]
  - Respiratory distress [Recovered/Resolved]

NARRATIVE: CASE EVENT DATE: 20200703
